FAERS Safety Report 8994928 (Version 1)
Quarter: 2013Q1

REPORT INFORMATION
  Report Type: Spontaneous
  Country: US (occurrence: US)
  Receive Date: 20130102
  Receipt Date: 20130102
  Transmission Date: 20140127
  Serious: Yes (Other)
  Sender: FDA-Public Use
  Company Number: US-AMGEN-USASP2012076115

PATIENT
  Age: 54 Year
  Sex: Female
  Weight: 61.22 kg

DRUGS (13)
  1. ENBREL [Suspect]
     Indication: PSORIATIC ARTHROPATHY
     Dosage: 50 MG, QWK
     Dates: start: 20030101
  2. CLOBEX                             /00012002/ [Concomitant]
     Dosage: 1 APP 2 TIMES A DAY
  3. SORIATANE [Concomitant]
     Dosage: 1 CAP(S) 1 X WEEKLY
  4. VALTREX [Concomitant]
     Dosage: 500 MG, PRN
  5. LISINOPRIL [Concomitant]
     Dosage: 10 MG, 1 TABLET ONCE A DAY
  6. HYDROCODONE [Concomitant]
     Indication: PAIN
     Dosage: 5/500 MG, 1 TABLET, BID PRN
  7. HYDROCODONE [Concomitant]
     Indication: NECK PAIN
  8. HYDROCODONE [Concomitant]
     Indication: BACK PAIN
  9. TEMAZEPAM [Concomitant]
     Dosage: 1 CAPSULE, ONCE A DAY (AT BEDTIME)
  10. CYMBALTA [Concomitant]
     Dosage: 60 MG, UNK
  11. RETIN A [Concomitant]
     Dosage: 1 APPLICATION PRN
  12. TACLONEX [Concomitant]
     Dosage: 0.064%-0.005% OINTMENT 1 APPLICATION PRN
  13. LYRICA [Concomitant]

REACTIONS (18)
  - Skin cancer [Not Recovered/Not Resolved]
  - Nephrolithiasis [Recovered/Resolved]
  - Hepatic enzyme increased [Recovered/Resolved]
  - Hypotension [Recovered/Resolved]
  - Incision site oedema [Not Recovered/Not Resolved]
  - Fibromyalgia [Unknown]
  - Pain [Unknown]
  - Carpal tunnel syndrome [Unknown]
  - Blood urine present [Not Recovered/Not Resolved]
  - Hypersensitivity [Unknown]
  - Diarrhoea [Unknown]
  - Nausea [Unknown]
  - Rotator cuff syndrome [Recovered/Resolved]
  - Cubital tunnel syndrome [Unknown]
  - Spinal osteoarthritis [Unknown]
  - Back pain [Unknown]
  - Neck pain [Unknown]
  - Psoriasis [Unknown]
